FAERS Safety Report 10128418 (Version 1)
Quarter: 2014Q2

REPORT INFORMATION
  Report Type: Spontaneous
  Country: FR (occurrence: FR)
  Receive Date: 20140428
  Receipt Date: 20140428
  Transmission Date: 20141212
  Serious: Yes (Life-Threatening, Hospitalization)
  Sender: FDA-Public Use
  Company Number: FR-BRISTOL-MYERS SQUIBB COMPANY-20667382

PATIENT
  Age: 49 Year
  Sex: Male

DRUGS (4)
  1. GLUCOPHAGE TABS 1000 MG [Suspect]
     Indication: TYPE 2 DIABETES MELLITUS
     Dosage: 1DF=60 UNIT NOS?FILM-COATED TABLET
     Route: 048
  2. ABILIFY [Suspect]
     Indication: BIPOLAR DISORDER
     Route: 048
     Dates: start: 20110613
  3. TERALITHE [Suspect]
     Indication: BIPOLAR DISORDER
     Dosage: OVERDOSE OF 2 BOXES OF 60 TABLETS
     Route: 048
  4. LORAZEPAM [Suspect]
     Indication: ANXIETY
     Dosage: 96 TABLETS
     Route: 048
     Dates: start: 20110613

REACTIONS (3)
  - Lactic acidosis [Unknown]
  - Intentional overdose [Unknown]
  - Anuria [Unknown]
